FAERS Safety Report 4350629-4 (Version None)
Quarter: 2004Q2

REPORT INFORMATION
  Report Type: 
  Country: None (occurrence: None)
  Receive Date: 20040430
  Receipt Date: 20040427
  Transmission Date: 20050107
  Serious: Yes (Life-Threatening, Other)
  Sender: FDA-Public Use
  Company Number: US-BRISTOL-MYERS SQUIBB COMPANY-12572202

PATIENT
  Age: 66 Year
  Sex: Female
  Weight: 56 kg

DRUGS (9)
  1. EFAVIRENZ [Suspect]
     Indication: HIV INFECTION
     Route: 048
     Dates: start: 20011001, end: 20030818
  2. STAVUDINE [Suspect]
     Indication: HIV INFECTION
     Dosage: TEMPORARILY HELD ON 22-MAR-2004
     Route: 048
     Dates: start: 20011120
  3. ABACAVIR [Suspect]
     Indication: HIV INFECTION
     Dosage: TEMPORARILY HELD ON 22-MAR-2004
     Route: 048
     Dates: start: 20011001
  4. LAMIVUDINE [Suspect]
     Indication: HIV INFECTION
     Dosage: TEMPORARILY HELD ON 22-MAR-2004
     Route: 048
     Dates: start: 20011001
  5. NEVIRAPINE [Suspect]
     Indication: HIV INFECTION
     Dosage: TEMPORARILY HELD ON 22-MAR-2004
     Route: 048
     Dates: start: 20030819
  6. MULTI-VITAMIN [Concomitant]
  7. PREMARIN [Concomitant]
  8. NAPROXEN [Concomitant]
  9. RESTORIL [Concomitant]
     Dosage: INTERMITTENT

REACTIONS (3)
  - BLOOD GLUCOSE INCREASED [None]
  - DIABETES MELLITUS [None]
  - LIPASE INCREASED [None]
